FAERS Safety Report 6667255-4 (Version None)
Quarter: 2010Q2

REPORT INFORMATION
  Report Type: 
  Country: None (occurrence: None)
  Receive Date: 20100401
  Receipt Date: 20100319
  Transmission Date: 20101027
  Serious: Yes (Hospitalization)
  Sender: FDA-Public Use
  Company Number: 2010-0916

PATIENT
  Age: 88 Year
  Sex: Female
  Weight: 54 kg

DRUGS (3)
  1. DYSPORT [Suspect]
     Indication: TORTICOLLIS
     Dosage: 400 UNITS (400 UNITS,SINGLE CYCLE), INTRAMUSCULAR
     Route: 030
     Dates: start: 20100224, end: 20100224
  2. ARICEPT [Concomitant]
  3. NAMENDA [Concomitant]

REACTIONS (4)
  - ASPIRATION [None]
  - CHOKING [None]
  - DYSPHAGIA [None]
  - MUSCULAR WEAKNESS [None]
